FAERS Safety Report 26143150 (Version 1)
Quarter: 2025Q4

REPORT INFORMATION
  Report Type: Spontaneous
  Country: US (occurrence: US)
  Receive Date: 20251211
  Receipt Date: 20251211
  Transmission Date: 20260118
  Serious: No
  Sender: ABBVIE
  Company Number: US-ABBVIE-6578871

PATIENT
  Sex: Male

DRUGS (1)
  1. LINACLOTIDE [Suspect]
     Active Substance: LINACLOTIDE
     Indication: Irritable bowel syndrome
     Route: 048
     Dates: start: 2023, end: 2025

REACTIONS (6)
  - Faeces discoloured [Unknown]
  - Abdominal pain upper [Unknown]
  - Faeces discoloured [Recovered/Resolved]
  - Nausea [Unknown]
  - Diarrhoea [Unknown]
  - Feeling abnormal [Unknown]

NARRATIVE: CASE EVENT DATE: 20250101
